FAERS Safety Report 25569119 (Version 1)
Quarter: 2025Q3

REPORT INFORMATION
  Report Type: Spontaneous
  Country: EU (occurrence: EU)
  Receive Date: 20250716
  Receipt Date: 20250716
  Transmission Date: 20251021
  Serious: Yes (Other)
  Sender: MYLAN
  Company Number: EU-VIANEX-003990

PATIENT
  Age: 67 Year
  Sex: Female

DRUGS (16)
  1. VANCOMYCIN [Suspect]
     Active Substance: VANCOMYCIN
     Indication: Bacterial endophthalmitis
  2. VANCOMYCIN [Suspect]
     Active Substance: VANCOMYCIN
  3. VANCOMYCIN [Suspect]
     Active Substance: VANCOMYCIN
  4. VANCOMYCIN [Suspect]
     Active Substance: VANCOMYCIN
  5. AMIKACIN [Suspect]
     Active Substance: AMIKACIN
     Indication: Bacterial endophthalmitis
  6. AMIKACIN [Suspect]
     Active Substance: AMIKACIN
  7. AMIKACIN [Suspect]
     Active Substance: AMIKACIN
  8. AMIKACIN [Suspect]
     Active Substance: AMIKACIN
  9. DORZOLAMIDE\TIMOLOL [Concomitant]
     Active Substance: DORZOLAMIDE\TIMOLOL
  10. DORZOLAMIDE\TIMOLOL [Concomitant]
     Active Substance: DORZOLAMIDE\TIMOLOL
     Route: 065
  11. DORZOLAMIDE\TIMOLOL [Concomitant]
     Active Substance: DORZOLAMIDE\TIMOLOL
     Route: 065
  12. DORZOLAMIDE\TIMOLOL [Concomitant]
     Active Substance: DORZOLAMIDE\TIMOLOL
  13. TRAVOPROST [Concomitant]
     Active Substance: TRAVOPROST
  14. TRAVOPROST [Concomitant]
     Active Substance: TRAVOPROST
     Route: 065
  15. TRAVOPROST [Concomitant]
     Active Substance: TRAVOPROST
     Route: 065
  16. TRAVOPROST [Concomitant]
     Active Substance: TRAVOPROST

REACTIONS (3)
  - Retinal toxicity [Unknown]
  - Retinal ischaemia [Unknown]
  - Off label use [Unknown]
